FAERS Safety Report 10345739 (Version 1)
Quarter: 2014Q3

REPORT INFORMATION
  Report Type: Spontaneous
  Country: NL (occurrence: NL)
  Receive Date: 20140728
  Receipt Date: 20140728
  Transmission Date: 20150326
  Serious: Yes (Other)
  Sender: FDA-Public Use
  Company Number: NL-BAYER-2014-108364

PATIENT
  Age: 62 Year
  Sex: Female

DRUGS (1)
  1. AVELOX [Suspect]
     Active Substance: MOXIFLOXACIN HYDROCHLORIDE
     Indication: PNEUMONIA PNEUMOCOCCAL
     Dosage: 400 MG, UNK
     Dates: start: 201403, end: 20140327

REACTIONS (5)
  - Aphagia [None]
  - Diarrhoea [None]
  - Dysgeusia [None]
  - Malaise [None]
  - Nausea [None]

NARRATIVE: CASE EVENT DATE: 20140327
